FAERS Safety Report 14618561 (Version 2)
Quarter: 2018Q2

REPORT INFORMATION
  Report Type: Spontaneous
  Country: FR (occurrence: FR)
  Receive Date: 20180309
  Receipt Date: 20180529
  Transmission Date: 20180711
  Serious: Yes (Disabling, Other)
  Sender: FDA-Public Use
  Company Number: PHHY2017FR201595

PATIENT
  Age: 64 Year
  Sex: Male
  Weight: 90 kg

DRUGS (7)
  1. CREON [Concomitant]
     Active Substance: PANCRELIPASE AMYLASE\PANCRELIPASE LIPASE\PANCRELIPASE PROTEASE
     Indication: PROPHYLAXIS
     Dosage: UNK
     Route: 048
  2. SANDOSTATIN [Concomitant]
     Active Substance: OCTREOTIDE ACETATE
     Indication: NEUROENDOCRINE TUMOUR
     Dosage: 30 MG, MONTHLY (ONCE IN 28 DAYS)
     Route: 030
     Dates: start: 20150813
  3. SANDOSTATIN [Concomitant]
     Active Substance: OCTREOTIDE ACETATE
     Indication: NEUROENDOCRINE TUMOUR
     Dosage: UNK
     Route: 030
  4. SUTENT [Suspect]
     Active Substance: SUNITINIB MALATE
     Indication: PANCREATIC NEUROENDOCRINE TUMOUR
     Dosage: 37.5 MG, QD
     Route: 065
     Dates: start: 20150813, end: 20170903
  5. SUTENT [Suspect]
     Active Substance: SUNITINIB MALATE
     Indication: PANCREATIC NEUROENDOCRINE TUMOUR
  6. AFINITOR [Suspect]
     Active Substance: EVEROLIMUS
     Indication: PANCREATIC NEUROENDOCRINE TUMOUR
     Dosage: 10 MG, QD
     Route: 065
     Dates: start: 20170904, end: 20170910
  7. AFINITOR [Suspect]
     Active Substance: EVEROLIMUS
     Indication: PANCREATIC NEUROENDOCRINE TUMOUR

REACTIONS (13)
  - Periorbital oedema [Not Recovered/Not Resolved]
  - Erythema [Recovered/Resolved]
  - Oedema [Recovered/Resolved]
  - Mucosal inflammation [Recovered/Resolved]
  - Liver function test abnormal [Not Recovered/Not Resolved]
  - Macrocytosis [Not Recovered/Not Resolved]
  - Lymphopenia [Not Recovered/Not Resolved]
  - Hair colour changes [Not Recovered/Not Resolved]
  - Erythema [Recovering/Resolving]
  - Thrombocytopenia [Recovered/Resolved]
  - Skin depigmentation [Not Recovered/Not Resolved]
  - Urticaria [Recovering/Resolving]
  - Diarrhoea [Recovered/Resolved]

NARRATIVE: CASE EVENT DATE: 201508
